FAERS Safety Report 20310763 (Version 1)
Quarter: 2022Q1

REPORT INFORMATION
  Report Type: Spontaneous
  Country: US (occurrence: US)
  Receive Date: 20220107
  Receipt Date: 20220107
  Transmission Date: 20220423
  Serious: Yes (Hospitalization, Other)
  Sender: FDA-Public Use
  Company Number: US-ORGANON-O2112USA002725

PATIENT
  Sex: Female

DRUGS (3)
  1. COZAAR [Suspect]
     Active Substance: LOSARTAN POTASSIUM
     Dosage: 25 MILLIGRAM
     Route: 048
  2. ARIMIDEX [Suspect]
     Active Substance: ANASTROZOLE
     Dosage: UNK
  3. CLINDAMYCIN [Suspect]
     Active Substance: CLINDAMYCIN
     Dosage: UNK

REACTIONS (2)
  - Anaphylactic reaction [Unknown]
  - Product availability issue [Unknown]
